FAERS Safety Report 7427876-8 (Version None)
Quarter: 2011Q2

REPORT INFORMATION
  Report Type: 
  Country: None (occurrence: None)
  Receive Date: 20110421
  Receipt Date: 20110411
  Transmission Date: 20111010
  Serious: Yes (Hospitalization, Other)
  Sender: FDA-Public Use
  Company Number: US-ELI_LILLY_AND_COMPANY-US201104004712

PATIENT
  Age: 73 Year
  Sex: Male

DRUGS (3)
  1. HUMULIN N [Suspect]
     Indication: TYPE 2 DIABETES MELLITUS
     Dosage: 35 U, EACH MORNING
     Dates: start: 20110315, end: 20110330
  2. NOVOLIN 70/30 [Concomitant]
     Dosage: UNK
  3. HUMULIN N [Suspect]
     Dosage: 25 U, EACH EVENING
     Dates: start: 20110315, end: 20110330

REACTIONS (6)
  - BLOOD GLUCOSE DECREASED [None]
  - SPEECH DISORDER [None]
  - BLOOD GLUCOSE INCREASED [None]
  - MALAISE [None]
  - SOMNOLENCE [None]
  - MEMORY IMPAIRMENT [None]
